FAERS Safety Report 10085644 (Version 1)
Quarter: 2014Q2

REPORT INFORMATION
  Report Type: Report from Study
  Country: US (occurrence: US)
  Receive Date: 20140418
  Receipt Date: 20140418
  Transmission Date: 20141212
  Serious: Yes (Other)
  Sender: FDA-Public Use
  Company Number: US-JNJFOC-20140409762

PATIENT
  Sex: Female
  Weight: 89.81 kg

DRUGS (1)
  1. REMICADE [Suspect]
     Indication: ANKYLOSING SPONDYLITIS
     Route: 042
     Dates: start: 200906

REACTIONS (3)
  - Hernia [Recovered/Resolved]
  - Wound [Not Recovered/Not Resolved]
  - Post procedural complication [Not Recovered/Not Resolved]
